FAERS Safety Report 11657911 (Version 2)
Quarter: 2015Q4

REPORT INFORMATION
  Report Type: Report from Study
  Country: US (occurrence: US)
  Receive Date: 20151023
  Receipt Date: 20151027
  Transmission Date: 20160304
  Serious: No
  Sender: FDA-Public Use
  Company Number: US-ABBVIE-15P-163-1362408-00

PATIENT
  Age: 29 Year
  Sex: Female
  Weight: 67.65 kg

DRUGS (1)
  1. LUPRON DEPOT [Suspect]
     Active Substance: LEUPROLIDE ACETATE
     Indication: ENDOMETRIOSIS
     Route: 030
     Dates: start: 201411

REACTIONS (7)
  - Insomnia [Not Recovered/Not Resolved]
  - Depression [Recovering/Resolving]
  - Nausea [Not Recovered/Not Resolved]
  - Hot flush [Recovering/Resolving]
  - Pelvic pain [Not Recovered/Not Resolved]
  - Back pain [Not Recovered/Not Resolved]
  - Vaginal haemorrhage [Not Recovered/Not Resolved]

NARRATIVE: CASE EVENT DATE: 201411
